FAERS Safety Report 11939074 (Version 2)
Quarter: 2016Q1

REPORT INFORMATION
  Report Type: Spontaneous
  Country: CO (occurrence: CO)
  Receive Date: 20160122
  Receipt Date: 20160212
  Transmission Date: 20160526
  Serious: Yes (Other)
  Sender: FDA-Public Use
  Company Number: CO-PFIZER INC-2016017136

PATIENT
  Age: 3 Year
  Sex: Female
  Weight: 9 kg

DRUGS (1)
  1. GENOTROPIN [Suspect]
     Active Substance: SOMATROPIN
     Indication: GROWTH HORMONE DEFICIENCY
     Dosage: 0.4 MG, DAILY
     Route: 058
     Dates: start: 20151230

REACTIONS (7)
  - Headache [Unknown]
  - Skin discolouration [Unknown]
  - Neck pain [Unknown]
  - Vomiting [Unknown]
  - Condition aggravated [Unknown]
  - Abdominal pain upper [Unknown]
  - Eye pain [Unknown]

NARRATIVE: CASE EVENT DATE: 20160104
